FAERS Safety Report 13711684 (Version 1)
Quarter: 2017Q3

REPORT INFORMATION
  Report Type: Spontaneous
  Country: IT (occurrence: IT)
  Receive Date: 20170703
  Receipt Date: 20170703
  Transmission Date: 20171127
  Serious: Yes (Other)
  Sender: FDA-Public Use
  Company Number: IT-BAYER-2017-122109

PATIENT
  Age: 21 Year
  Sex: Male

DRUGS (2)
  1. LANSOX [Concomitant]
     Active Substance: LANSOPRAZOLE
     Dosage: 30 MG, UNK
     Route: 048
     Dates: start: 20160823, end: 20160823
  2. ASPIRINA 500 MG [Suspect]
     Active Substance: ASPIRIN
     Indication: INFLUENZA
     Dosage: 400 MG, ONCE
     Route: 048
     Dates: start: 20160822, end: 20160822

REACTIONS (3)
  - Abdominal pain upper [Unknown]
  - Eructation [Unknown]
  - Hyperchlorhydria [Unknown]

NARRATIVE: CASE EVENT DATE: 20160823
